FAERS Safety Report 9963564 (Version 1)
Quarter: 2014Q1

REPORT INFORMATION
  Report Type: Report from Study
  Country: US (occurrence: US)
  Receive Date: 20140305
  Receipt Date: 20140305
  Transmission Date: 20141002
  Serious: No
  Sender: FDA-Public Use
  Company Number: US-ABBVIE-13P-163-1118323-00

PATIENT
  Age: 8 Year
  Sex: Male
  Weight: 28.15 kg

DRUGS (2)
  1. HUMIRA [Suspect]
     Indication: UVEITIS
     Route: 058
     Dates: start: 2004
  2. HUMIRA [Suspect]
     Route: 058
     Dates: start: 2011, end: 201305

REACTIONS (1)
  - Uveitis [Not Recovered/Not Resolved]
